FAERS Safety Report 9649600 (Version 1)
Quarter: 2013Q4

REPORT INFORMATION
  Report Type: Spontaneous
  Country: RU (occurrence: None)
  Receive Date: 20131025
  Receipt Date: 20131025
  Transmission Date: 20140711
  Serious: No
  Sender: FDA-Public Use
  Company Number: B0931692A

PATIENT
  Sex: 0

DRUGS (6)
  1. OXALIPLATIN [Suspect]
     Indication: RECTAL CANCER
     Route: 042
  2. METRONIDAZOLE [Suspect]
  3. RADIOTHERAPY [Suspect]
  4. CAPECITABINE [Suspect]
  5. ZOFRAN [Suspect]
     Route: 042
  6. DEXAMETHASONE [Suspect]
     Route: 042

REACTIONS (1)
  - Skin reaction [None]
